FAERS Safety Report 9876968 (Version 1)
Quarter: 2014Q1

REPORT INFORMATION
  Report Type: Spontaneous
  Country: US (occurrence: US)
  Receive Date: 20140206
  Receipt Date: 20140206
  Transmission Date: 20141002
  Serious: No
  Sender: FDA-Public Use
  Company Number: US-B.I. PHARMACEUTICALS,INC./RIDGEFIELD-2014-BI-04194BP

PATIENT
  Age: 61 Year
  Sex: Female

DRUGS (13)
  1. SPIRIVA [Suspect]
     Indication: CHRONIC OBSTRUCTIVE PULMONARY DISEASE
     Dosage: 18 MCG
     Route: 055
     Dates: start: 201312, end: 201312
  2. BUSPIRONE [Concomitant]
     Indication: FIBROMYALGIA
     Dosage: 300 MG
     Route: 048
  3. INTEGRA [Concomitant]
     Indication: ANAEMIA
     Route: 048
  4. CYCLOBENZAPRINE [Concomitant]
     Indication: FIBROMYALGIA
     Dosage: 10 MG
     Route: 048
  5. CARBETALOL [Concomitant]
     Indication: PALPITATIONS
     Dosage: 25 MG
     Route: 048
  6. VITAMIN D [Concomitant]
     Indication: OSTEOPENIA
     Dosage: 1000 U
     Route: 048
  7. OMEPRAZOLE [Concomitant]
     Indication: GASTROOESOPHAGEAL REFLUX DISEASE
     Dosage: 40 MG
     Route: 048
  8. OMEPRAZOLE [Concomitant]
     Indication: HIATUS HERNIA
  9. LOSARTAN [Concomitant]
     Indication: HYPERTENSION
     Dosage: 100 MG
     Route: 048
  10. TEKTURNA [Concomitant]
     Indication: HYPERTENSION
     Dosage: 150 MG
     Route: 048
  11. ATENOLOL [Concomitant]
     Indication: HYPERTENSION
     Dosage: 25 MG
     Route: 048
  12. ATENOLOL [Concomitant]
     Indication: PALPITATIONS
  13. CLONIDINE (GENERIC) [Concomitant]
     Indication: HYPERTENSION
     Dosage: 0.3 MG
     Route: 048

REACTIONS (2)
  - Rectal haemorrhage [Not Recovered/Not Resolved]
  - Cough [Recovered/Resolved]
